FAERS Safety Report 17033668 (Version 1)
Quarter: 2019Q4

REPORT INFORMATION
  Report Type: Spontaneous
  Country: SE (occurrence: SE)
  Receive Date: 20191114
  Receipt Date: 20191114
  Transmission Date: 20200122
  Serious: Yes (Hospitalization)
  Sender: FDA-Public Use
  Company Number: SE-ELI_LILLY_AND_COMPANY-SE201911003837

PATIENT
  Age: 26 Year
  Sex: Female

DRUGS (3)
  1. BURONIL [Suspect]
     Active Substance: MELPERONE HYDROCHLORIDE
     Indication: PRODUCT USED FOR UNKNOWN INDICATION
     Dosage: 1250 MG, UNKNOWN
     Route: 048
     Dates: start: 20181112, end: 20181112
  2. PROMETHAZINE HYDROCHLORIDE. [Suspect]
     Active Substance: PROMETHAZINE HYDROCHLORIDE
     Indication: PRODUCT USED FOR UNKNOWN INDICATION
     Dosage: UNK UNK, UNKNOWN
     Route: 048
     Dates: start: 20181112, end: 20181112
  3. CYMBALTA [Suspect]
     Active Substance: DULOXETINE HYDROCHLORIDE
     Indication: PRODUCT USED FOR UNKNOWN INDICATION
     Dosage: 220 MG, UNKNOWN
     Route: 048
     Dates: start: 20181112, end: 20181112

REACTIONS (8)
  - Intentional self-injury [Unknown]
  - Akathisia [Unknown]
  - Disturbance in attention [Unknown]
  - Vomiting [Unknown]
  - Agitation [Unknown]
  - Somnolence [Unknown]
  - Intentional overdose [Unknown]
  - Hallucination [Unknown]

NARRATIVE: CASE EVENT DATE: 20181112
